FAERS Safety Report 10483085 (Version 2)
Quarter: 2014Q4

REPORT INFORMATION
  Report Type: Spontaneous
  Country: JP (occurrence: JP)
  Receive Date: 20140930
  Receipt Date: 20141001
  Transmission Date: 20150528
  Serious: Yes (Death)
  Sender: FDA-Public Use
  Company Number: JP-ROCHE-1466896

PATIENT
  Age: 68 Year
  Sex: Male

DRUGS (2)
  1. XELODA [Suspect]
     Active Substance: CAPECITABINE
     Indication: COLON CANCER METASTATIC
     Dosage: DOSAGE IS UNCERTAIN.
     Route: 048
     Dates: start: 2013, end: 2013
  2. LYRICA [Concomitant]
     Active Substance: PREGABALIN
     Indication: CERVICAL MYELOPATHY
     Route: 048
     Dates: start: 2013, end: 2013

REACTIONS (2)
  - Dizziness [Unknown]
  - Colon cancer recurrent [Fatal]

NARRATIVE: CASE EVENT DATE: 2013
